FAERS Safety Report 6139738-7 (Version None)
Quarter: 2009Q2

REPORT INFORMATION
  Report Type: 
  Country: None (occurrence: None)
  Receive Date: 20090401
  Receipt Date: 20090320
  Transmission Date: 20091009
  Serious: Yes (Other)
  Sender: FDA-Public Use
  Company Number: NL-BAYER-200916769GPV

PATIENT
  Sex: Female

DRUGS (1)
  1. ULTRAVIST 300 [Suspect]
     Indication: COMPUTERISED TOMOGRAM THORAX
     Dosage: AS USED: 80 ML
     Route: 042
     Dates: start: 20090317, end: 20090317

REACTIONS (6)
  - ARRHYTHMIA [None]
  - ELECTROCARDIOGRAM ABNORMAL [None]
  - NAUSEA [None]
  - PAIN IN EXTREMITY [None]
  - SENSE OF OPPRESSION [None]
  - VOMITING [None]
